FAERS Safety Report 8819196 (Version 1)
Quarter: 2012Q4

REPORT INFORMATION
  Report Type: Spontaneous
  Country: US (occurrence: None)
  Receive Date: 20121004
  Receipt Date: 20121004
  Transmission Date: 20130627
  Serious: No
  Sender: FDA-Public Use
  Company Number: DL2012-0544

PATIENT
  Age: 24 Year
  Sex: Female

DRUGS (3)
  1. MIFEPRISTONE [Suspect]
     Indication: TERMINATION OF PREGNANCY
     Route: 048
     Dates: start: 20120514
  2. MISOPROSTOL TABLETS, 200 MG [Suspect]
     Route: 002
     Dates: start: 20120515
  3. DOXYCYCLINE [Concomitant]

REACTIONS (1)
  - Haemorrhage [None]
